FAERS Safety Report 17591778 (Version 1)
Quarter: 2020Q1

REPORT INFORMATION
  Report Type: Spontaneous
  Country: IT (occurrence: IT)
  Receive Date: 20200327
  Receipt Date: 20200327
  Transmission Date: 20200409
  Serious: Yes (Other)
  Sender: FDA-Public Use
  Company Number: IT-SUN PHARMACEUTICAL INDUSTRIES LTD-2020RR-241931

PATIENT
  Age: 68 Year
  Sex: Male

DRUGS (2)
  1. DOCETAXEL. [Suspect]
     Active Substance: DOCETAXEL
     Indication: LIPOSARCOMA
     Dosage: 4 CYCLES, ON DAY 8, EVERY 21 DAYS
     Route: 065
     Dates: start: 201304, end: 201307
  2. GEMCITABINE. [Suspect]
     Active Substance: GEMCITABINE
     Indication: LIPOSARCOMA
     Dosage: FOUR CYCLES, ON DAYS 1-8
     Route: 065
     Dates: start: 201304, end: 201307

REACTIONS (1)
  - Disease progression [Unknown]
